FAERS Safety Report 19076661 (Version 2)
Quarter: 2021Q2

REPORT INFORMATION
  Report Type: Other
  Country: AR (occurrence: AR)
  Receive Date: 20210331
  Receipt Date: 20210403
  Transmission Date: 20210717
  Serious: Yes (Other)
  Sender: FDA-Public Use
  Company Number: AR-ROCHE-2799728

PATIENT
  Age: 70 Year
  Sex: Female

DRUGS (1)
  1. XOLAIR [Suspect]
     Active Substance: OMALIZUMAB
     Indication: ASTHMA
     Route: 058
     Dates: start: 20100331, end: 202007

REACTIONS (11)
  - Product dose omission issue [Unknown]
  - Hypersensitivity [Not Recovered/Not Resolved]
  - Dyspnoea [Not Recovered/Not Resolved]
  - Asthmatic crisis [Unknown]
  - Muscle contracture [Not Recovered/Not Resolved]
  - Drug ineffective [Unknown]
  - Incorrect route of product administration [Unknown]
  - Fatigue [Not Recovered/Not Resolved]
  - Rhinorrhoea [Unknown]
  - Cough [Not Recovered/Not Resolved]
  - Disease recurrence [Unknown]

NARRATIVE: CASE EVENT DATE: 20200701
